FAERS Safety Report 20169164 (Version 2)
Quarter: 2021Q4

REPORT INFORMATION
  Report Type: Spontaneous
  Country: MX (occurrence: MX)
  Receive Date: 20211210
  Receipt Date: 20211213
  Transmission Date: 20220303
  Serious: Yes (Disabling)
  Sender: FDA-Public Use
  Company Number: MX-ABBVIE-21K-107-4194249-00

PATIENT
  Sex: Female

DRUGS (2)
  1. HUMIRA [Suspect]
     Active Substance: ADALIMUMAB
     Indication: Rheumatoid arthritis
     Route: 058
     Dates: start: 2014
  2. CELECOXIB [Concomitant]
     Active Substance: CELECOXIB
     Indication: Rheumatoid arthritis

REACTIONS (3)
  - Mobility decreased [Unknown]
  - Pain [Unknown]
  - Hypertension [Unknown]

NARRATIVE: CASE EVENT DATE: 20190101
